FAERS Safety Report 25966164 (Version 1)
Quarter: 2025Q4

REPORT INFORMATION
  Report Type: Spontaneous
  Country: CN (occurrence: CN)
  Receive Date: 20251028
  Receipt Date: 20251028
  Transmission Date: 20260118
  Serious: Yes (Hospitalization)
  Sender: ALEXION PHARMACEUTICALS
  Company Number: CN-ASTRAZENECA-202510CHN022214CN

PATIENT
  Age: 83 Year
  Sex: Male
  Weight: 68 kg

DRUGS (3)
  1. DAPAGLIFLOZIN [Suspect]
     Active Substance: DAPAGLIFLOZIN
     Indication: Hepatic function abnormal
     Dosage: 10 MILLIGRAM, QD
     Dates: start: 20250806, end: 20250823
  2. CLOPIDOGREL BISULFATE [Suspect]
     Active Substance: CLOPIDOGREL BISULFATE
     Indication: Hepatic function abnormal
     Dosage: 75 MILLIGRAM, QD
     Dates: start: 20250806, end: 20250823
  3. ACARBOSE [Suspect]
     Active Substance: ACARBOSE
     Indication: Hepatic function abnormal
     Dosage: 50 MILLIGRAM, TID
     Dates: start: 20250806, end: 20250823

REACTIONS (1)
  - Hepatic function abnormal [Recovering/Resolving]

NARRATIVE: CASE EVENT DATE: 20250823
